FAERS Safety Report 11636810 (Version 1)
Quarter: 2015Q4

REPORT INFORMATION
  Report Type: Spontaneous
  Country: US (occurrence: US)
  Receive Date: 20151016
  Receipt Date: 20151016
  Transmission Date: 20160304
  Serious: No
  Sender: FDA-Public Use
  Company Number: US-GALDERMA-US15006658

PATIENT
  Age: 48 Year
  Sex: Female

DRUGS (17)
  1. DOXYCYCLINE 20 MG [Concomitant]
     Indication: ROSACEA
  2. CERAVE NON-FOAMING HYDRATING CLEANSER [Concomitant]
     Indication: ACNE
     Route: 061
     Dates: start: 2012
  3. CERAVE NON-FOAMING HYDRATING CLEANSER [Concomitant]
     Indication: SKIN FRAGILITY
  4. PAULAS CHOICE HYDRALIGHT SPF30 [Concomitant]
     Indication: PROPHYLAXIS AGAINST SOLAR RADIATION
     Route: 061
     Dates: start: 1980
  5. SOOLANTRA [Suspect]
     Active Substance: IVERMECTIN
     Indication: ACNE
  6. CERAVE NON-FOAMING HYDRATING CLEANSER [Concomitant]
     Indication: SEBORRHOEA
  7. TRETINOIN. [Concomitant]
     Active Substance: TRETINOIN
     Indication: ACNE
     Dosage: 0.1%
     Route: 061
     Dates: start: 1990
  8. BENZOYL PEROXIDE 2.5% [Concomitant]
     Indication: ACNE
     Dosage: 2.5%
     Route: 061
     Dates: start: 1980
  9. DOXYCYCLINE 20 MG [Concomitant]
     Indication: ACNE
     Dosage: 20 MG
     Route: 061
     Dates: start: 2010
  10. SA RENEWING CLEANSER [Concomitant]
     Indication: ROSACEA
  11. CERAVE NON-FOAMING HYDRATING CLEANSER [Concomitant]
     Indication: ROSACEA
  12. SA RENEWING CLEANSER [Concomitant]
     Indication: ACNE
     Route: 061
     Dates: start: 2012
  13. SA RENEWING CLEANSER [Concomitant]
     Indication: SKIN FRAGILITY
  14. SA RENEWING CLEANSER [Concomitant]
     Indication: SEBORRHOEA
  15. SOOLANTRA [Suspect]
     Active Substance: IVERMECTIN
     Indication: ROSACEA
     Dosage: 1%
     Route: 061
     Dates: start: 20150703, end: 20150708
  16. VASELINE PURE [Concomitant]
     Active Substance: PETROLATUM
     Indication: SKIN FRAGILITY
     Route: 061
     Dates: start: 1990
  17. LA ROCHE POSAY ULTRA-LIGHT MINERAL SPF 50 [Concomitant]
     Indication: PROPHYLAXIS AGAINST SOLAR RADIATION
     Route: 061
     Dates: start: 1980

REACTIONS (3)
  - Drug ineffective [Recovered/Resolved]
  - Acne [Recovered/Resolved]
  - Seborrhoea [Recovered/Resolved]

NARRATIVE: CASE EVENT DATE: 20150706
